FAERS Safety Report 21585951 (Version 3)
Quarter: 2022Q4

REPORT INFORMATION
  Report Type: Spontaneous
  Country: PL (occurrence: PL)
  Receive Date: 20221111
  Receipt Date: 20221223
  Transmission Date: 20230113
  Serious: Yes (Hospitalization, Other)
  Sender: FDA-Public Use
  Company Number: PL-BIOGEN-2022BI01167386

PATIENT
  Age: 57 Year
  Sex: Female

DRUGS (2)
  1. TECFIDERA [Suspect]
     Active Substance: DIMETHYL FUMARATE
     Indication: Product used for unknown indication
     Route: 050
     Dates: end: 202210
  2. TECFIDERA [Suspect]
     Active Substance: DIMETHYL FUMARATE
     Dosage: MAINTENANCE DOSE
     Route: 050
     Dates: end: 20220913

REACTIONS (4)
  - Uterine leiomyosarcoma [Not Recovered/Not Resolved]
  - Cardiopulmonary failure [Unknown]
  - Paraparesis [Unknown]
  - Urinary tract procedural complication [Unknown]

NARRATIVE: CASE EVENT DATE: 20220630
